FAERS Safety Report 26183826 (Version 1)
Quarter: 2025Q4

REPORT INFORMATION
  Report Type: Report from Study
  Country: US (occurrence: US)
  Receive Date: 20251221
  Receipt Date: 20251221
  Transmission Date: 20260117
  Serious: Yes (Disabling)
  Sender: ABBVIE
  Company Number: US-ABBVIE-6600497

PATIENT
  Sex: Female

DRUGS (1)
  1. LUMIGAN [Suspect]
     Active Substance: BIMATOPROST
     Indication: Product used for unknown indication
     Dosage: ROA: OPHTHALMIC, FORM STRENGTH: 0.01 PERCENT, FREQUENCY TEXT: 1 DROP PER EYE, TWICE A DAY
     Route: 065

REACTIONS (1)
  - Disability [Unknown]
